FAERS Safety Report 6596206-6 (Version None)
Quarter: 2010Q1

REPORT INFORMATION
  Report Type: 
  Country: None (occurrence: None)
  Receive Date: 20100219
  Receipt Date: 20100219
  Transmission Date: 20100710
  Serious: Yes (Hospitalization)
  Sender: FDA-Public Use
  Company Number: None

PATIENT
  Sex: Female
  Weight: 77.2 kg

DRUGS (4)
  1. FLUOROURACIL [Suspect]
     Dosage: 550 MG
  2. LEUCOVORIN CALCIUM [Suspect]
     Dosage: 750 MG
  3. ELOXATIN [Suspect]
     Dosage: 120 MG
  4. MORPHINE [Concomitant]

REACTIONS (4)
  - DIARRHOEA [None]
  - NAUSEA [None]
  - NEUTROPENIA [None]
  - VOMITING [None]
